FAERS Safety Report 21493716 (Version 3)
Quarter: 2023Q1

REPORT INFORMATION
  Report Type: Spontaneous
  Country: LV (occurrence: LV)
  Receive Date: 20221021
  Receipt Date: 20230117
  Transmission Date: 20230417
  Serious: Yes (Other)
  Sender: FDA-Public Use
  Company Number: LV-009507513-2210LVA005098

PATIENT
  Age: 91 Year
  Sex: Male

DRUGS (12)
  1. MOLNUPIRAVIR [Suspect]
     Active Substance: MOLNUPIRAVIR
     Indication: COVID-19 treatment
     Dosage: UNK
     Route: 048
     Dates: start: 20220920, end: 20220925
  2. TAZOBACTAM [Concomitant]
     Active Substance: TAZOBACTAM
     Dosage: UNK
     Dates: start: 2022, end: 2022
  3. MEROPENEM [Concomitant]
     Active Substance: MEROPENEM
     Dosage: UNK
     Dates: start: 2022
  4. METOPROLOL [Concomitant]
     Active Substance: METOPROLOL
     Dosage: UNK
     Dates: start: 2022
  5. DIGOXIN [Concomitant]
     Active Substance: DIGOXIN
     Dosage: UNK
     Dates: start: 2022
  6. BETAHISTINE [Concomitant]
     Active Substance: BETAHISTINE
     Dosage: UNK
     Dates: start: 2022
  7. FUROSEMIDE [Concomitant]
     Active Substance: FUROSEMIDE
     Dosage: UNK
     Dates: start: 2022
  8. ACETAMINOPHEN [Concomitant]
     Active Substance: ACETAMINOPHEN
     Dosage: UNK
     Dates: start: 2022
  9. TORSEMIDE [Concomitant]
     Active Substance: TORSEMIDE
     Dosage: UNK
     Dates: start: 2022
  10. IPIDACRINE [Concomitant]
     Active Substance: IPIDACRINE
     Dosage: UNK
     Dates: start: 2022
  11. AMLODIPINE\ATORVASTATIN\PERINDOPRIL [Concomitant]
     Active Substance: AMLODIPINE\ATORVASTATIN\PERINDOPRIL
     Dosage: UNK
     Dates: start: 2022
  12. DEXAMETHASONE [Concomitant]
     Active Substance: DEXAMETHASONE
     Dosage: UNK
     Dates: start: 2022

REACTIONS (2)
  - Alanine aminotransferase increased [Recovered/Resolved]
  - Rehabilitation therapy [Unknown]

NARRATIVE: CASE EVENT DATE: 20220901
